FAERS Safety Report 11773729 (Version 2)
Quarter: 2015Q4

REPORT INFORMATION
  Report Type: Spontaneous
  Country: US (occurrence: US)
  Receive Date: 20151124
  Receipt Date: 20151127
  Transmission Date: 20160304
  Serious: No
  Sender: FDA-Public Use
  Company Number: US-BAYER-2015-468181

PATIENT
  Age: 75 Year
  Sex: Female
  Weight: 72.56 kg

DRUGS (14)
  1. CALCIUM [Concomitant]
     Active Substance: CALCIUM
  2. MIRALAX [Suspect]
     Active Substance: POLYETHYLENE GLYCOL 3350
     Indication: GASTROINTESTINAL DISORDER
     Dosage: 1 DF, QD
     Route: 048
     Dates: start: 201403
  3. WARFARIN [Concomitant]
     Active Substance: WARFARIN
  4. BIOTINE [Concomitant]
     Active Substance: LACTOPEROXIDASE BOVINE\LYSOZYME HYDROCHLORIDE
  5. SUPER B COMPLEX [Concomitant]
     Active Substance: CYANOCOBALAMIN\DEXPANTHENOL\NIACINAMIDE\PYRIDOXINE HYDROCHLORIDE\RIBOFLAVIN 5^-PHOSPHATE SODIUM\THIAMINE HYDROCHLORIDE\VITAMIN B COMPLEX
  6. AMOXICILLIN. [Concomitant]
     Active Substance: AMOXICILLIN
  7. MORPHINE [Concomitant]
     Active Substance: MORPHINE
  8. CELEXA [Concomitant]
     Active Substance: CITALOPRAM HYDROBROMIDE
  9. ZINC [Concomitant]
     Active Substance: ZINC\ZINC CHLORIDE
  10. VITAMIN D [Concomitant]
     Active Substance: CHOLECALCIFEROL
  11. TOPAMAX [Concomitant]
     Active Substance: TOPIRAMATE
  12. BAYER LOW DOSE [Suspect]
     Active Substance: ASPIRIN
     Indication: ANTICOAGULANT THERAPY
     Dosage: 1 DF, QD
  13. VITAMIN B12 [Concomitant]
     Active Substance: CYANOCOBALAMIN
  14. LUTEIN [Concomitant]
     Active Substance: LUTEIN

REACTIONS (2)
  - Off label use [None]
  - Product use issue [None]
